FAERS Safety Report 22031625 (Version 3)
Quarter: 2023Q1

REPORT INFORMATION
  Report Type: Spontaneous
  Country: US (occurrence: US)
  Receive Date: 20230224
  Receipt Date: 20230325
  Transmission Date: 20230417
  Serious: No
  Sender: FDA-Public Use
  Company Number: US-UNITED THERAPEUTICS-UNT-2023-003086

PATIENT
  Age: 64 Year
  Sex: Female

DRUGS (7)
  1. REMODULIN [Suspect]
     Active Substance: TREPROSTINIL
     Indication: Pulmonary arterial hypertension
     Dosage: 0.00255 ?G/KG, CONTINUING
     Route: 058
  2. REMODULIN [Suspect]
     Active Substance: TREPROSTINIL
     Dosage: 0.00304 ?G/KG, CONTINUING
     Route: 058
  3. REMODULIN [Suspect]
     Active Substance: TREPROSTINIL
     Dosage: UNK, CONTINUING
     Route: 058
     Dates: start: 202212
  4. REMODULIN [Suspect]
     Active Substance: TREPROSTINIL
     Indication: Pulmonary arterial hypertension
     Dosage: 0.01095 ?G/KG, CONTINUING
     Route: 058
  5. SELEXIPAG [Concomitant]
     Active Substance: SELEXIPAG
     Indication: Pulmonary arterial hypertension
     Dosage: 600 ?G, BID (1 IN 0.5 D)
     Route: 048
     Dates: start: 20170912
  6. SELEXIPAG [Concomitant]
     Active Substance: SELEXIPAG
     Dosage: 800 ?G, BID (1 IN 0.5 D)
     Route: 048
     Dates: start: 20170912
  7. SELEXIPAG [Concomitant]
     Active Substance: SELEXIPAG
     Dosage: 800 ?G, BID (1 IN 0.5 D)
     Route: 048
     Dates: start: 20170217

REACTIONS (9)
  - Unintentional medical device removal [Recovered/Resolved]
  - Device placement issue [Unknown]
  - Infusion site irritation [Unknown]
  - Infusion site haemorrhage [Unknown]
  - Infusion site erythema [Recovering/Resolving]
  - Infusion site pain [Recovering/Resolving]
  - Infusion site infection [Unknown]
  - Device use issue [Recovered/Resolved]
  - Device use error [Recovered/Resolved]

NARRATIVE: CASE EVENT DATE: 20230101
